FAERS Safety Report 24630035 (Version 1)
Quarter: 2024Q4

REPORT INFORMATION
  Report Type: Spontaneous
  Country: GB (occurrence: GB)
  Receive Date: 20241118
  Receipt Date: 20241118
  Transmission Date: 20250115
  Serious: Yes (Life-Threatening, Other)
  Sender: TEVA
  Company Number: None

PATIENT
  Weight: 80 kg

DRUGS (1)
  1. DOXYCYCLINE [Suspect]
     Active Substance: DOXYCYCLINE
     Route: 065

REACTIONS (4)
  - Suicidal ideation [Unknown]
  - Anxiety [Unknown]
  - Fear [Unknown]
  - Depression [Unknown]
